FAERS Safety Report 9637217 (Version 1)
Quarter: 2013Q4

REPORT INFORMATION
  Report Type: Spontaneous
  Country: US (occurrence: US)
  Receive Date: 20131022
  Receipt Date: 20131022
  Transmission Date: 20140711
  Serious: Yes (Hospitalization)
  Sender: FDA-Public Use
  Company Number: US-BIOGENIDEC-2013BI099759

PATIENT
  Age: 46 Year
  Sex: Female

DRUGS (1)
  1. TECFIDERA [Suspect]
     Indication: MULTIPLE SCLEROSIS
     Route: 048
     Dates: start: 201306, end: 20130920

REACTIONS (5)
  - Cerebrospinal fluid leakage [Unknown]
  - Upper limb fracture [Recovered/Resolved]
  - Fall [Recovered/Resolved]
  - Balance disorder [Unknown]
  - Multiple sclerosis relapse [Unknown]
